FAERS Safety Report 17560835 (Version 1)
Quarter: 2020Q1

REPORT INFORMATION
  Report Type: Spontaneous
  Country: US (occurrence: US)
  Receive Date: 20200318
  Receipt Date: 20200318
  Transmission Date: 20200409
  Serious: Yes (Life-Threatening)
  Sender: FDA-Public Use
  Company Number: None

PATIENT
  Age: 24 Year
  Sex: Male

DRUGS (1)
  1. IBUPROFEN. [Suspect]
     Active Substance: IBUPROFEN
     Dosage: ?          OTHER DOSE:2 TABLETS;?
     Route: 048
     Dates: start: 20200314, end: 20200315

REACTIONS (7)
  - Pyrexia [None]
  - Dyspnoea [None]
  - Rhinorrhoea [None]
  - Heart rate increased [None]
  - Cough [None]
  - Hypoxia [None]
  - Total lung capacity decreased [None]

NARRATIVE: CASE EVENT DATE: 20200314
